FAERS Safety Report 4536753-1 (Version None)
Quarter: 2004Q4

REPORT INFORMATION
  Report Type: 
  Country: None (occurrence: None)
  Receive Date: 20041220
  Receipt Date: 20041207
  Transmission Date: 20050328
  Serious: Yes (Other)
  Sender: FDA-Public Use
  Company Number: 2004111484

PATIENT
  Age: 66 Year
  Sex: Female

DRUGS (1)
  1. PROVERA [Suspect]
     Indication: ENDOMETRIAL HYPOPLASIA
     Dosage: 10 MG (5 MG, TWICE DAILY), ORAL
     Route: 048
     Dates: start: 20040921, end: 20041001

REACTIONS (5)
  - FEELING ABNORMAL [None]
  - JOINT SWELLING [None]
  - LIVER FUNCTION TEST ABNORMAL [None]
  - SWELLING FACE [None]
  - VAGINAL HAEMORRHAGE [None]
